FAERS Safety Report 12278156 (Version 1)
Quarter: 2016Q2

REPORT INFORMATION
  Report Type: Spontaneous
  Country: GB (occurrence: GB)
  Receive Date: 20160418
  Receipt Date: 20160418
  Transmission Date: 20160815
  Serious: Yes (Other)
  Sender: FDA-Public Use
  Company Number: GB-B. BRAUN MEDICAL INC.-1050676

PATIENT
  Age: 73 Year
  Sex: Male
  Weight: 83 kg

DRUGS (13)
  1. PARACETAMOL [Concomitant]
     Active Substance: ACETAMINOPHEN
     Dates: start: 20160202, end: 20160301
  2. PREDNISOLONE. [Concomitant]
     Active Substance: PREDNISOLONE
     Dates: start: 20160118, end: 20160125
  3. TIOTROPIUM (TIOTROPIUM BROMIDE) [Concomitant]
     Dates: start: 20151019
  4. GAVISCON ADVANCE (POTASSIUM BICARBONATE, SODIUM ALGINATE) [Concomitant]
     Dates: start: 20160403
  5. LOCERYL (AMOROLFINE HYDROCHLORIDE) [Concomitant]
     Active Substance: AMOROLFINE HYDROCHLORIDE
     Dates: start: 20160202, end: 20160216
  6. METRONIDAZOLE. [Suspect]
     Active Substance: METRONIDAZOLE
     Dates: start: 20160321
  7. DOXYCYCLINE. [Concomitant]
     Active Substance: DOXYCYCLINE
     Dates: start: 20160315
  8. SALBUTAMOL [Concomitant]
     Active Substance: ALBUTEROL
     Route: 055
     Dates: start: 20151019
  9. AMOXICILLAN [Concomitant]
     Active Substance: AMOXICILLIN
     Dates: start: 20160118, end: 20160123
  10. TRIMETHOPRIM. [Concomitant]
     Active Substance: TRIMETHOPRIM
     Dates: start: 20160226, end: 20160304
  11. AQUEOUS CREAM (CETOSTEARYL ALCOHOL) [Concomitant]
     Active Substance: CETOSTEARYL ALCOHOL
     Dates: start: 20151019
  12. OMEPRAZOLE. [Concomitant]
     Active Substance: OMEPRAZOLE
     Dates: start: 20160315
  13. SYMBICORT [Concomitant]
     Active Substance: BUDESONIDE\FORMOTEROL FUMARATE DIHYDRATE
     Dates: start: 20151019

REACTIONS (1)
  - Joint swelling [None]
